FAERS Safety Report 7361726-3 (Version None)
Quarter: 2011Q1

REPORT INFORMATION
  Report Type: 
  Country: None (occurrence: None)
  Receive Date: 20110318
  Receipt Date: 20110316
  Transmission Date: 20110831
  Serious: Yes (Hospitalization, Other)
  Sender: FDA-Public Use
  Company Number: US-MERCK-0712USA08209

PATIENT
  Age: 61 Year
  Sex: Female
  Weight: 80 kg

DRUGS (9)
  1. KLONOPIN [Concomitant]
     Indication: ANXIETY
     Route: 065
     Dates: start: 19910101
  2. FOSAMAX [Suspect]
     Indication: OSTEOPENIA
     Route: 048
     Dates: start: 20030201, end: 20060301
  3. KLONOPIN [Concomitant]
     Indication: MAJOR DEPRESSION
     Route: 065
     Dates: start: 19910101
  4. PROZAC [Concomitant]
     Indication: MAJOR DEPRESSION
     Route: 065
     Dates: start: 19930101
  5. ELAVIL [Concomitant]
     Indication: MAJOR DEPRESSION
     Route: 065
     Dates: start: 19930101
  6. REMERON [Concomitant]
     Indication: MAJOR DEPRESSION
     Route: 065
     Dates: start: 19990101
  7. PROZAC [Concomitant]
     Indication: ANXIETY
     Route: 065
     Dates: start: 19930101
  8. REMERON [Concomitant]
     Indication: ANXIETY
     Route: 065
     Dates: start: 19990101
  9. ELAVIL [Concomitant]
     Indication: ANXIETY
     Route: 065
     Dates: start: 19930101

REACTIONS (62)
  - DERMATITIS [None]
  - IMPAIRED HEALING [None]
  - OESOPHAGEAL ULCER [None]
  - MENTAL DISORDER [None]
  - GASTRIC DISORDER [None]
  - FIBROMA [None]
  - GASTROOESOPHAGEAL REFLUX DISEASE [None]
  - MUSCLE CONTRACTIONS INVOLUNTARY [None]
  - FALL [None]
  - ESSENTIAL TREMOR [None]
  - DEPRESSION [None]
  - GLUCOSE TOLERANCE IMPAIRED [None]
  - SLEEP APNOEA SYNDROME [None]
  - GAIT DISTURBANCE [None]
  - ADVERSE DRUG REACTION [None]
  - DENTAL CARIES [None]
  - INSOMNIA [None]
  - MALAISE [None]
  - TOOTH ABSCESS [None]
  - ROAD TRAFFIC ACCIDENT [None]
  - EXOSTOSIS [None]
  - ASTHMA [None]
  - DRUG DEPENDENCE [None]
  - COUGH [None]
  - WHIPLASH INJURY [None]
  - SWELLING [None]
  - GALLBLADDER DISORDER [None]
  - FIBROMYALGIA [None]
  - BENIGN NEOPLASM [None]
  - PHARYNGITIS [None]
  - STOMATITIS [None]
  - CHRONIC SINUSITIS [None]
  - OSTEONECROSIS OF JAW [None]
  - IRRITABLE BOWEL SYNDROME [None]
  - PNEUMONIA ASPIRATION [None]
  - ANAEMIA [None]
  - JOINT SPRAIN [None]
  - ARTHRALGIA [None]
  - GASTRITIS EROSIVE [None]
  - CATARACT [None]
  - ORAL DISORDER [None]
  - GASTRIC ULCER [None]
  - FUNGAL TEST POSITIVE [None]
  - DYSPNOEA [None]
  - PAIN IN JAW [None]
  - BRONCHITIS [None]
  - COGNITIVE DISORDER [None]
  - HYPERLIPIDAEMIA [None]
  - HERPES ZOSTER [None]
  - PAIN [None]
  - URINARY INCONTINENCE [None]
  - NERVE ROOT INJURY [None]
  - MEMORY IMPAIRMENT [None]
  - COLONIC POLYP [None]
  - TENDONITIS [None]
  - NECK PAIN [None]
  - ANXIETY [None]
  - OSTEOARTHRITIS [None]
  - HAEMORRHOIDS [None]
  - GLAUCOMA [None]
  - MUSCLE SPASMS [None]
  - MAJOR DEPRESSION [None]
